FAERS Safety Report 9506772 (Version 2)
Quarter: 2014Q3

REPORT INFORMATION
  Report Type: Spontaneous
  Country: IT (occurrence: IT)
  Receive Date: 20130909
  Receipt Date: 20140916
  Transmission Date: 20150326
  Serious: Yes (Hospitalization, Other)
  Sender: FDA-Public Use
  Company Number: IT-AMGEN-ITASP2013061706

PATIENT
  Age: 45 Year
  Sex: Female
  Weight: 60 kg

DRUGS (3)
  1. XGEVA [Suspect]
     Active Substance: DENOSUMAB
     Indication: BREAST CANCER
     Dosage: 120 MG, CYCLICAL
     Route: 058
     Dates: start: 20130718, end: 20130819
  2. DOCETAXEL RATIOPHARM [Suspect]
     Active Substance: DOCETAXEL
     Indication: PRODUCT USED FOR UNKNOWN INDICATION
     Dosage: 55.7 MG, QWK
     Route: 042
     Dates: start: 20130506, end: 20130827
  3. ENANTONE LP [Concomitant]
     Active Substance: LEUPROLIDE ACETATE
     Dosage: 3.75 MG, UNK

REACTIONS (5)
  - Visual pathway disorder [Unknown]
  - Hepatic cancer metastatic [Unknown]
  - Disturbance in attention [Unknown]
  - Meningitis [Unknown]
  - Bone cancer metastatic [Unknown]

NARRATIVE: CASE EVENT DATE: 20130827
